FAERS Safety Report 5734426-0 (Version None)
Quarter: 2008Q2

REPORT INFORMATION
  Report Type: 
  Country: None (occurrence: None)
  Receive Date: 20080508
  Receipt Date: 20080508
  Transmission Date: 20081010
  Serious: Yes (Other)
  Sender: FDA-Public Use
  Company Number: None

PATIENT
  Age: 28 Year
  Sex: Male
  Weight: 77.1115 kg

DRUGS (1)
  1. CREST PRO HEALTH REGULAR STRENGHT PROCTOR AND GAMBLE [Suspect]
     Indication: DENTAL CARE
     Dosage: 1 CAP FULL ONCE DAILY DENTAL
     Route: 004
     Dates: start: 20080401, end: 20080507

REACTIONS (1)
  - TOOTH DISCOLOURATION [None]
